FAERS Safety Report 4407106-1 (Version None)
Quarter: 2004Q3

REPORT INFORMATION
  Report Type: 
  Country: None (occurrence: None)
  Receive Date: 20040721
  Receipt Date: 20040713
  Transmission Date: 20050211
  Serious: No
  Sender: FDA-Public Use
  Company Number: 2004UW09090

PATIENT
  Age: 75 Year
  Sex: Female
  Weight: 96.1626 kg

DRUGS (6)
  1. ATACAND [Suspect]
     Indication: HYPERTENSION
     Dosage: 16 MG ONCE PO
     Route: 048
     Dates: start: 20040503, end: 20040506
  2. ATACAND [Suspect]
     Indication: HYPERTENSION
     Dosage: 8 MG PO
     Route: 048
  3. SYNTHROID [Concomitant]
  4. PREMARIN [Concomitant]
  5. ELAVIL [Concomitant]
  6. AVAPRO [Concomitant]

REACTIONS (3)
  - ASTHENIA [None]
  - DYSPNOEA [None]
  - MUSCLE CRAMP [None]
